FAERS Safety Report 14701328 (Version 2)
Quarter: 2018Q2

REPORT INFORMATION
  Report Type: Report from Study
  Country: US (occurrence: US)
  Receive Date: 20180330
  Receipt Date: 20180406
  Transmission Date: 20180711
  Serious: Yes (Hospitalization)
  Sender: FDA-Public Use
  Company Number: US-ACTELION-A-US2018-168664

PATIENT
  Age: 28 Year
  Sex: Female
  Weight: 43.54 kg

DRUGS (22)
  1. OPSUMIT [Suspect]
     Active Substance: MACITENTAN
     Indication: PULMONARY HYPERTENSION
     Dosage: 10 MG, QD
     Route: 048
  2. ARIPIPRAZOLE. [Concomitant]
     Active Substance: ARIPIPRAZOLE
     Dosage: 2 MG, QD
  3. BETAMETHASONE. [Concomitant]
     Active Substance: BETAMETHASONE
     Route: 061
  4. MULTIVITAMIN [Concomitant]
     Active Substance: VITAMINS
     Dosage: 2 TABLETS, QD
     Route: 048
  5. PREDNISONE. [Concomitant]
     Active Substance: PREDNISONE
     Dosage: 5 MG, UNK
     Route: 048
  6. METHADONE [Concomitant]
     Active Substance: METHADONE HYDROCHLORIDE
     Dosage: 7 MG, UNK
     Route: 048
  7. BUPROPION. [Concomitant]
     Active Substance: BUPROPION
     Dosage: 150 MG, QD
     Route: 048
  8. LEVOTHYROXINE. [Concomitant]
     Active Substance: LEVOTHYROXINE
     Dosage: 200 UNK, UNK
     Route: 048
  9. AZATHIOPRINE. [Concomitant]
     Active Substance: AZATHIOPRINE
     Dosage: 25 MG, UNK
     Route: 048
  10. SPIRONOLACTONE AND HYDROCHLOROTHIAZIDE [Concomitant]
     Active Substance: HYDROCHLOROTHIAZIDE\SPIRONOLACTONE
     Dosage: 25 MG, BID
     Route: 048
  11. VELETRI [Suspect]
     Active Substance: EPOPROSTENOL
     Indication: PULMONARY HYPERTENSION
     Dosage: 81 NG/KG, PER MIN
     Route: 042
  12. ADCIRCA [Concomitant]
     Active Substance: TADALAFIL
  13. CITIRIZINE [Concomitant]
     Dosage: 10 MG, QD
     Route: 048
  14. CLONAZEPAM. [Concomitant]
     Active Substance: CLONAZEPAM
     Dosage: 2 MG, UNK
     Route: 048
  15. DIGOXIN. [Concomitant]
     Active Substance: DIGOXIN
     Dosage: 125 MCG, UNK
     Route: 048
  16. MOMETASONE [Concomitant]
     Active Substance: MOMETASONE
     Dosage: 2 PUFFS
     Route: 055
  17. NAFCILLIN [Concomitant]
     Active Substance: NAFCILLIN\NAFCILLIN SODIUM
     Dosage: 2000 MG, Q6HRS
     Route: 042
  18. POTASSIUM [Concomitant]
     Active Substance: POTASSIUM
     Dosage: 30 MEQ, BID
     Route: 048
  19. FUROSEMIDE. [Concomitant]
     Active Substance: FUROSEMIDE
     Dosage: 40 MG, UNK
     Route: 048
  20. OXYCODONE [Concomitant]
     Active Substance: OXYCODONE
     Dosage: 10 MG, Q4HRS
  21. COUMADIN [Concomitant]
     Active Substance: WARFARIN SODIUM
  22. VITAMIN D2 [Concomitant]
     Active Substance: ERGOCALCIFEROL
     Dosage: 20 MG, UNK
     Route: 048

REACTIONS (13)
  - Diarrhoea [Unknown]
  - Colitis ulcerative [Unknown]
  - Condition aggravated [Unknown]
  - Catheter site discharge [Recovered/Resolved]
  - Blood culture negative [Recovered/Resolved]
  - Device damage [Recovered/Resolved]
  - Rash [Unknown]
  - Flushing [Unknown]
  - Catheter management [Unknown]
  - Nausea [Unknown]
  - Catheter culture positive [Recovered/Resolved]
  - Headache [Unknown]
  - Catheter site infection [Recovered/Resolved]

NARRATIVE: CASE EVENT DATE: 20180316
